FAERS Safety Report 18375634 (Version 1)
Quarter: 2020Q4

REPORT INFORMATION
  Report Type: Report from Study
  Country: JP (occurrence: JP)
  Receive Date: 20201013
  Receipt Date: 20201013
  Transmission Date: 20210114
  Serious: Yes (Hospitalization, Other)
  Sender: FDA-Public Use
  Company Number: JP-ASTELLAS-2020JP015070

PATIENT
  Age: 39 Year
  Sex: Female
  Weight: 39 kg

DRUGS (17)
  1. FLUCONAZOLE. [Concomitant]
     Active Substance: FLUCONAZOLE
     Indication: PROPHYLAXIS
     Dosage: 200 MG/DAY, UNKNOWN FREQ.
     Route: 048
     Dates: end: 20190613
  2. GLYPHAGEN [Concomitant]
     Indication: HEPATIC FUNCTION ABNORMAL
     Dosage: 40 ML/DAY, UNKNOWN FREQ.
     Route: 065
     Dates: end: 20190716
  3. VFEND [Concomitant]
     Active Substance: VORICONAZOLE
     Indication: CELLULITIS
     Dosage: 400 MG/DAY, UNKNOWN FREQ.
     Route: 048
     Dates: start: 20190613
  4. PARIET [Concomitant]
     Active Substance: RABEPRAZOLE SODIUM
     Indication: PROPHYLAXIS
     Dosage: 10 MG/DAY, UNKNOWN FREQ.
     Route: 048
  5. BIO-THREE [Concomitant]
     Active Substance: HERBALS
     Indication: PROPHYLAXIS
     Dosage: 3 G/DAY, UNKNOWN FREQ.
     Route: 048
  6. GLYPHAGEN [Concomitant]
     Indication: PROPHYLAXIS
  7. POLYMIXIN B SULFATE [Concomitant]
     Indication: PROPHYLAXIS
     Dosage: 12 DF/DAY, UNKNOWN FREQ.
     Route: 048
  8. FIRSTCIN [Concomitant]
     Active Substance: CEFOZOPRAN HYDROCHLORIDE
     Indication: CELLULITIS
     Dosage: 4 G/DAY, UNKNOWN FREQ.
     Route: 065
     Dates: start: 20190606, end: 20190612
  9. DAIPHEN [Concomitant]
     Active Substance: SULFAMETHOXAZOLE\TRIMETHOPRIM
     Indication: PROPHYLAXIS
     Dosage: 1 DF/DAY, UNKNOWN FREQ.
     Route: 048
  10. CIPROXAN [CIPROFLOXACIN LACTATE] [Concomitant]
     Active Substance: CIPROFLOXACIN LACTATE
     Indication: CELLULITIS
     Dosage: 800 MG/DAY, UNKNOWN FREQ.
     Route: 065
     Dates: start: 20190612, end: 20190703
  11. AMBISOME [Concomitant]
     Active Substance: AMPHOTERICIN B
     Indication: CELLULITIS
     Dosage: 100 MG/DAY, UNKNOWN FREQ.
     Route: 065
     Dates: start: 20190613, end: 20190620
  12. TEICOPLANIN [Concomitant]
     Active Substance: TEICOPLANIN
     Indication: CELLULITIS
     Dosage: 250 MG/DAY, UNKNOWN FREQ.
     Route: 065
     Dates: start: 20190609, end: 20190719
  13. MEROPEN [MEROPENEM TRIHYDRATE] [Concomitant]
     Active Substance: MEROPENEM
     Indication: CELLULITIS
     Dosage: 4 G/DAY, UNKNOWN FREQ.
     Route: 065
     Dates: start: 20190612, end: 20190625
  14. ASP2215 [Suspect]
     Active Substance: GILTERITINIB
     Indication: ACUTE MYELOID LEUKAEMIA RECURRENT
     Route: 048
     Dates: start: 20190517, end: 20190728
  15. TATHION [Concomitant]
     Active Substance: GLUTATHIONE
     Indication: HEPATIC FUNCTION ABNORMAL
     Dosage: 100 MG/DAY, UNKNOWN FREQ.
     Route: 065
     Dates: start: 20190608, end: 20190716
  16. TATHION [Concomitant]
     Active Substance: GLUTATHIONE
     Indication: PROPHYLAXIS
  17. ASP2215 [Suspect]
     Active Substance: GILTERITINIB
     Route: 048
     Dates: start: 20190729, end: 20190801

REACTIONS (3)
  - Cellulitis [Recovering/Resolving]
  - Hepatic function abnormal [Recovered/Resolved]
  - Electrocardiogram QT prolonged [Recovered/Resolved]

NARRATIVE: CASE EVENT DATE: 20190527
